FAERS Safety Report 5765520-6 (Version None)
Quarter: 2008Q2

REPORT INFORMATION
  Report Type: 
  Country: None (occurrence: None)
  Receive Date: 20080611
  Receipt Date: 20080604
  Transmission Date: 20081010
  Serious: Yes (Life-Threatening, Hospitalization, Disabling, Other)
  Sender: FDA-Public Use
  Company Number: US-MERCK-0805USA04349

PATIENT
  Age: 67 Year
  Sex: Female

DRUGS (16)
  1. FOSAMAX [Suspect]
     Indication: OSTEOPOROSIS
     Route: 048
     Dates: end: 20080512
  2. LASIX [Concomitant]
     Route: 048
  3. CALCIUM (UNSPECIFIED) [Concomitant]
     Route: 048
  4. PRIMIDONE [Concomitant]
     Route: 048
  5. NEURONTIN [Concomitant]
     Route: 048
  6. EFFEXOR [Concomitant]
     Route: 048
  7. ASPIRIN [Concomitant]
     Route: 048
  8. GLIPIZIDE [Concomitant]
     Route: 048
  9. COREG [Concomitant]
     Route: 048
  10. ALLOPURINOL MSD [Concomitant]
     Route: 048
  11. LANTUS [Concomitant]
     Route: 065
  12. NORVASC [Concomitant]
     Route: 048
  13. LIPITOR [Concomitant]
     Route: 048
  14. VITAMINS (UNSPECIFIED) [Concomitant]
     Route: 065
  15. DETROL [Concomitant]
     Route: 048
  16. AMBIEN [Concomitant]
     Route: 048

REACTIONS (11)
  - ANAEMIA [None]
  - ASPIRATION [None]
  - BRONCHOSPASM [None]
  - FOREIGN BODY TRAUMA [None]
  - HYPOXIA [None]
  - LARYNGEAL INFLAMMATION [None]
  - LARYNGEAL ULCERATION [None]
  - LEUKOCYTOSIS [None]
  - OEDEMA PERIPHERAL [None]
  - RENAL FAILURE ACUTE [None]
  - SINUS TACHYCARDIA [None]
